FAERS Safety Report 17192206 (Version 2)
Quarter: 2020Q4

REPORT INFORMATION
  Report Type: Report from Study
  Country: GB (occurrence: GB)
  Receive Date: 20191223
  Receipt Date: 20201117
  Transmission Date: 20210113
  Serious: Yes (Life-Threatening)
  Sender: FDA-Public Use
  Company Number: GB-JNJFOC-20191217512

PATIENT
  Age: 67 Year
  Sex: Male
  Weight: 76.9 kg

DRUGS (13)
  1. DARATUMUMAB [Suspect]
     Active Substance: DARATUMUMAB
     Dosage: DAY 1
     Route: 042
     Dates: start: 20191121, end: 20191128
  2. FILGRASTIM [Suspect]
     Active Substance: FILGRASTIM
     Dosage: DAY 1-4 STEM CELL MOBILISATION
     Route: 058
     Dates: start: 20190113
  3. MELPHALAN. [Suspect]
     Active Substance: MELPHALAN
     Indication: PLASMA CELL MYELOMA
     Dosage: DAY-1 PRE ASCT
     Route: 042
     Dates: start: 20190117
  4. DARATUMUMAB [Suspect]
     Active Substance: DARATUMUMAB
     Indication: PLASMA CELL MYELOMA
     Dosage: DAY 1, 8, 15
     Route: 042
     Dates: start: 20180925
  5. BORTEZOMIB. [Suspect]
     Active Substance: BORTEZOMIB
     Indication: PLASMA CELL MYELOMA
     Dosage: DAY 1, 4 8 11
     Route: 058
     Dates: start: 20190925
  6. LENALIDOMIDE [Suspect]
     Active Substance: LENALIDOMIDE
     Indication: PLASMA CELL MYELOMA
     Dosage: DAY 1-14
     Route: 048
     Dates: start: 20180925
  7. DEXAMETHASONE. [Suspect]
     Active Substance: DEXAMETHASONE
     Indication: PLASMA CELL MYELOMA
     Dosage: DAY 1, 4, 8 11
     Route: 048
     Dates: start: 20180925
  8. DEXAMETHASONE. [Suspect]
     Active Substance: DEXAMETHASONE
     Dosage: DAY 1, 8, 15, 22
     Route: 048
     Dates: start: 20191128, end: 20191128
  9. BORTEZOMIB. [Suspect]
     Active Substance: BORTEZOMIB
     Dosage: DAY 1, 8, 15, 22
     Route: 058
     Dates: start: 20191121, end: 20191128
  10. CYCLOPHOSPHAMIDE. [Suspect]
     Active Substance: CYCLOPHOSPHAMIDE
     Indication: PLASMA CELL MYELOMA
     Dosage: DAY 1 AND 8 OF CYCLE
     Route: 048
     Dates: start: 20180925
  11. LENALIDOMIDE [Suspect]
     Active Substance: LENALIDOMIDE
     Dosage: DAY 1-21
     Route: 048
     Dates: start: 20191128, end: 20191128
  12. FILGRASTIM [Suspect]
     Active Substance: FILGRASTIM
     Indication: PLASMA CELL MYELOMA
     Dosage: DAY 1-4 STEM CELL MOBILISATION
     Route: 058
     Dates: start: 20190110
  13. CYCLOPHOSPHAMIDE. [Suspect]
     Active Substance: CYCLOPHOSPHAMIDE
     Dosage: DAY 1 AND 8 OF CYCLE
     Route: 048
     Dates: start: 20181204

REACTIONS (1)
  - Adenocarcinoma metastatic [Not Recovered/Not Resolved]

NARRATIVE: CASE EVENT DATE: 20191113
